FAERS Safety Report 25903695 (Version 1)
Quarter: 2025Q4

REPORT INFORMATION
  Report Type: Spontaneous
  Country: EU (occurrence: EU)
  Receive Date: 20251010
  Receipt Date: 20251010
  Transmission Date: 20260118
  Serious: Yes (Life-Threatening, Hospitalization)
  Sender: TEVA
  Company Number: None

PATIENT
  Age: 39 Year
  Sex: Male

DRUGS (4)
  1. QUETIAPINE [Suspect]
     Active Substance: QUETIAPINE
     Indication: Product used for unknown indication
     Route: 065
     Dates: start: 20250906
  2. METHADONE HYDROCHLORIDE [Suspect]
     Active Substance: METHADONE HYDROCHLORIDE
     Indication: Product used for unknown indication
     Dosage: METHADONE HYDROCHLORIDE PUBLIC ASSISTANCE - PARIS HOSPITALS 40 MG/15 ML, SYRUP IN SINGLE-DOSE CON...
     Route: 065
     Dates: start: 20250906
  3. NALOXONE [Concomitant]
     Active Substance: NALOXONE
     Indication: Product used for unknown indication
     Dosage: NALOXONE BASE
     Route: 045
     Dates: start: 20250906
  4. COCAINE [Suspect]
     Active Substance: COCAINE
     Indication: Product used for unknown indication
     Route: 065
     Dates: start: 20250906

REACTIONS (3)
  - Coma [Recovered/Resolved]
  - Poisoning deliberate [Unknown]
  - Substance abuser [Unknown]

NARRATIVE: CASE EVENT DATE: 20250906
